FAERS Safety Report 9381735 (Version 1)
Quarter: 2013Q3

REPORT INFORMATION
  Report Type: Spontaneous
  Country: JP (occurrence: JP)
  Receive Date: 20130703
  Receipt Date: 20130703
  Transmission Date: 20140515
  Serious: Yes (Hospitalization)
  Sender: FDA-Public Use
  Company Number: JP-ASTELLAS-2013JP007173

PATIENT
  Age: 88 Year
  Sex: Male

DRUGS (1)
  1. BETANIS [Suspect]
     Dosage: 25 MG, UID/QD
     Route: 048

REACTIONS (1)
  - Thrombocytopenic purpura [Unknown]
